FAERS Safety Report 19129558 (Version 2)
Quarter: 2021Q2

REPORT INFORMATION
  Report Type: Spontaneous
  Country: US (occurrence: US)
  Receive Date: 20210413
  Receipt Date: 20210429
  Transmission Date: 20210717
  Serious: Yes (Other)
  Sender: FDA-Public Use
  Company Number: US-009507513-2104USA002261

PATIENT
  Age: 63 Year
  Sex: Male
  Weight: 106.1 kg

DRUGS (3)
  1. ZINC (UNSPECIFIED) [Concomitant]
     Active Substance: ZINC
     Dosage: 50 MILLIGRAM, DAILY
  2. COUMADIN [Concomitant]
     Active Substance: WARFARIN SODIUM
  3. KEYTRUDA [Suspect]
     Active Substance: PEMBROLIZUMAB
     Indication: MALIGNANT MELANOMA
     Dosage: 200 MILLIGRAM
     Route: 042
     Dates: start: 20190531, end: 20200117

REACTIONS (3)
  - Blood thyroid stimulating hormone decreased [Unknown]
  - Immune-mediated enterocolitis [Unknown]
  - Blood thyroid stimulating hormone abnormal [Unknown]

NARRATIVE: CASE EVENT DATE: 201906
